FAERS Safety Report 18253745 (Version 2)
Quarter: 2020Q4

REPORT INFORMATION
  Report Type: Spontaneous
  Country: US (occurrence: US)
  Receive Date: 20200910
  Receipt Date: 20201015
  Transmission Date: 20210113
  Serious: No
  Sender: FDA-Public Use
  Company Number: US-PFIZER INC-2020348509

PATIENT
  Age: 98 Year
  Sex: Female
  Weight: 50.8 kg

DRUGS (1)
  1. XALATAN [Suspect]
     Active Substance: LATANOPROST
     Indication: GLAUCOMA
     Dosage: 2 DROP, 1X/DAY (EACH EYE AT NIGHT)
     Route: 047

REACTIONS (3)
  - Drug ineffective [Unknown]
  - Intraocular pressure increased [Not Recovered/Not Resolved]
  - Body height decreased [Unknown]
